FAERS Safety Report 4360032-9 (Version None)
Quarter: 2004Q2

REPORT INFORMATION
  Report Type: 
  Country: None (occurrence: None)
  Receive Date: 20040513
  Receipt Date: 20040428
  Transmission Date: 20050107
  Serious: Yes (Hospitalization)
  Sender: FDA-Public Use
  Company Number: 200403717

PATIENT
  Sex: Female

DRUGS (1)
  1. MOTRIN [Suspect]
     Indication: ARTHRITIS
     Dosage: 800 MG, ONCE DAILY

REACTIONS (2)
  - PERFORATED ULCER [None]
  - PERITONITIS [None]
